FAERS Safety Report 17225822 (Version 2)
Quarter: 2020Q1

REPORT INFORMATION
  Report Type: Report from Study
  Country: AU (occurrence: AU)
  Receive Date: 20200102
  Receipt Date: 20200109
  Transmission Date: 20200409
  Serious: Yes (Death, Hospitalization)
  Sender: FDA-Public Use
  Company Number: AU-BEIGENE AUS PTY LTD-BEIGENE-2018-000083

PATIENT

DRUGS (8)
  1. BGB-3111 [Suspect]
     Active Substance: ZANUBRUTINIB
     Dosage: 320 MG, QD
     Route: 048
     Dates: start: 20180223, end: 20180419
  2. OBINUTUZUMAB. [Suspect]
     Active Substance: OBINUTUZUMAB
     Dosage: 900 MG, ONE TIME DOSE
     Route: 042
     Dates: start: 20160818, end: 20160818
  3. TEMAZEPAM. [Concomitant]
     Active Substance: TEMAZEPAM
     Indication: PROPHYLAXIS
     Dosage: 10 MG, QD
     Route: 048
     Dates: start: 20160824
  4. OBINUTUZUMAB. [Suspect]
     Active Substance: OBINUTUZUMAB
     Indication: CHRONIC LYMPHOCYTIC LEUKAEMIA
     Dosage: 100 MG, ONE TIME DOSE
     Route: 042
     Dates: start: 20160817, end: 20160817
  5. FOLIC ACID. [Concomitant]
     Active Substance: FOLIC ACID
     Indication: PROPHYLAXIS
     Dosage: 500 ?G, QD
     Route: 048
     Dates: start: 2016
  6. DUODART [Concomitant]
     Active Substance: DUTASTERIDE\TAMSULOSIN
     Indication: PROPHYLAXIS
     Dosage: 500/400 ?G, QD
     Route: 048
     Dates: start: 2016
  7. OBINUTUZUMAB. [Suspect]
     Active Substance: OBINUTUZUMAB
     Dosage: 1000 MG, ONE TIME DOSE
     Route: 042
     Dates: start: 20160824, end: 20160824
  8. BGB-3111 [Suspect]
     Active Substance: ZANUBRUTINIB
     Indication: CHRONIC LYMPHOCYTIC LEUKAEMIA
     Dosage: 320 MG, QD
     Route: 048
     Dates: start: 20160817, end: 20180127

REACTIONS (1)
  - Pneumocystis jirovecii pneumonia [Recovering/Resolving]

NARRATIVE: CASE EVENT DATE: 20180125
